FAERS Safety Report 24957716 (Version 1)
Quarter: 2025Q1

REPORT INFORMATION
  Report Type: Spontaneous
  Country: US (occurrence: US)
  Receive Date: 20250212
  Receipt Date: 20250212
  Transmission Date: 20250409
  Serious: No
  Sender: ABBVIE
  Company Number: US-ABBVIE-6127707

PATIENT
  Age: 33 Year
  Sex: Female
  Weight: 61 kg

DRUGS (1)
  1. BOTOX [Suspect]
     Active Substance: ONABOTULINUMTOXINA
     Indication: Product used for unknown indication
     Route: 065
     Dates: start: 2020, end: 2025

REACTIONS (2)
  - Multiple use of single-use product [Unknown]
  - Drug ineffective [Unknown]
